FAERS Safety Report 9720894 (Version 5)
Quarter: 2016Q2

REPORT INFORMATION
  Report Type: Report from Study
  Country: US (occurrence: US)
  Receive Date: 20131129
  Receipt Date: 20160518
  Transmission Date: 20160815
  Serious: Yes (Hospitalization, Other)
  Sender: FDA-Public Use
  Company Number: US-JNJFOC-20131115095

PATIENT
  Age: 52 Year
  Sex: Female
  Weight: 131.54 kg

DRUGS (2)
  1. INFLIXIMAB, RECOMBINANT [Suspect]
     Active Substance: INFLIXIMAB
     Indication: PSORIASIS
     Route: 042
     Dates: start: 201308
  2. STELARA [Concomitant]
     Active Substance: USTEKINUMAB
     Route: 065
     Dates: start: 201308

REACTIONS (3)
  - Metastases to liver [Unknown]
  - Metastatic carcinoid tumour [Not Recovered/Not Resolved]
  - Metastases to gastrointestinal tract [Unknown]

NARRATIVE: CASE EVENT DATE: 20131101
